FAERS Safety Report 17989541 (Version 1)
Quarter: 2020Q3

REPORT INFORMATION
  Report Type: Spontaneous
  Country: US (occurrence: US)
  Receive Date: 20200707
  Receipt Date: 20200707
  Transmission Date: 20201103
  Serious: Yes (Death)
  Sender: FDA-Public Use
  Company Number: None

PATIENT
  Age: 78 Year
  Sex: Female
  Weight: 75 kg

DRUGS (1)
  1. REMDESIVIR. [Suspect]
     Active Substance: REMDESIVIR
     Indication: COVID-19
     Route: 040
     Dates: start: 20200702, end: 20200703

REACTIONS (13)
  - Chest pain [None]
  - Confusional state [None]
  - Pulseless electrical activity [None]
  - Hypoxia [None]
  - Acute myocardial infarction [None]
  - Cardiac arrest [None]
  - Acute respiratory failure [None]
  - Metabolic encephalopathy [None]
  - Pulse absent [None]
  - Troponin increased [None]
  - Pneumonia viral [None]
  - Electrocardiogram abnormal [None]
  - Bradycardia [None]

NARRATIVE: CASE EVENT DATE: 20200704
